FAERS Safety Report 5184176-7 (Version None)
Quarter: 2006Q4

REPORT INFORMATION
  Report Type: 
  Country: None (occurrence: None)
  Receive Date: 20061220
  Receipt Date: 20060215
  Transmission Date: 20070319
  Serious: No
  Sender: FDA-Public Use
  Company Number: US-GLAXOSMITHKLINE-A0593795A

PATIENT
  Age: 31 Year
  Sex: Male

DRUGS (1)
  1. NICODERM CQ [Suspect]
     Dates: start: 20060206, end: 20060215

REACTIONS (4)
  - ARTHRALGIA [None]
  - CHEST PAIN [None]
  - FEELING ABNORMAL [None]
  - NAUSEA [None]
